FAERS Safety Report 18515330 (Version 2)
Quarter: 2020Q4

REPORT INFORMATION
  Report Type: Other
  Country: GB (occurrence: GB)
  Receive Date: 20201118
  Receipt Date: 20201125
  Transmission Date: 20210114
  Serious: Yes (Other)
  Sender: FDA-Public Use
  Company Number: GB-ROCHE-2713332

PATIENT

DRUGS (2)
  1. BEVACIZUMAB. [Suspect]
     Active Substance: BEVACIZUMAB
     Indication: OPEN ANGLE GLAUCOMA
     Dosage: 2.5 MG IN 0.1 ML, 10 MM FROM THE SUPERIOR LIMBUS AT THE END OF THE PROCEDURE
     Route: 057
  2. BEVACIZUMAB. [Suspect]
     Active Substance: BEVACIZUMAB
     Indication: SCLERECTOMY

REACTIONS (11)
  - Macular oedema [Unknown]
  - Hyphaema [Unknown]
  - Endophthalmitis [Unknown]
  - Retinal vein occlusion [Unknown]
  - Vitreous haemorrhage [Unknown]
  - Choroidal haemorrhage [Unknown]
  - Intentional product use issue [Unknown]
  - Iridocyclitis [Unknown]
  - Wound secretion [Unknown]
  - Off label use [Unknown]
  - Intraocular pressure increased [Unknown]
